FAERS Safety Report 10760610 (Version 1)
Quarter: 2015Q1

REPORT INFORMATION
  Report Type: Spontaneous
  Country: CA (occurrence: None)
  Receive Date: 20150202
  Receipt Date: 20150202
  Transmission Date: 20150721
  Serious: Yes (Other)
  Sender: FDA-Public Use
  Company Number: 20150002

PATIENT
  Age: 63 Year
  Sex: Female

DRUGS (11)
  1. CO ENSYME Q10 [Concomitant]
  2. VITAMIN C [Concomitant]
     Active Substance: ASCORBIC ACID
  3. METFORMIN [Concomitant]
     Active Substance: METFORMIN HYDROCHLORIDE
  4. DEXIRON [Suspect]
     Active Substance: IRON DEXTRAN
     Indication: IRON DEFICIENCY ANAEMIA
     Route: 042
     Dates: start: 20141024, end: 20141107
  5. COVERSYL (PERINDOPRIL) [Concomitant]
  6. OMEGA 3 [Concomitant]
     Active Substance: OMEGA-3 FATTY ACIDS
  7. SYNTHROID(LEVOTHYROXINE SODIUM) [Concomitant]
  8. GLICLAZIDE MR [Concomitant]
     Active Substance: GLICLAZIDE
  9. MAGNESIUM [Concomitant]
     Active Substance: MAGNESIUM
  10. POTASSIUM SUPPLEMENT [Concomitant]
  11. VITAMIN B12 [Concomitant]
     Active Substance: CYANOCOBALAMIN

REACTIONS (6)
  - Abdominal pain [None]
  - Infusion related reaction [None]
  - Blood pressure decreased [None]
  - Hypersensitivity [None]
  - Back pain [None]
  - Pain in extremity [None]

NARRATIVE: CASE EVENT DATE: 20141101
